FAERS Safety Report 6453159-9 (Version None)
Quarter: 2009Q4

REPORT INFORMATION
  Report Type: 
  Country: None (occurrence: None)
  Receive Date: 20091124
  Receipt Date: 20091112
  Transmission Date: 20100525
  Serious: Yes (Other)
  Sender: FDA-Public Use
  Company Number: IE-PFIZER INC-2009297197

PATIENT
  Age: 80 Year
  Sex: Female

DRUGS (6)
  1. DETRUSITOL [Suspect]
     Indication: URINARY TRACT INFECTION
     Dosage: 4 MG, UNK
     Route: 048
     Dates: start: 20091020
  2. TRIMETHOPRIM [Suspect]
     Dosage: 200 MG, UNK
     Route: 048
     Dates: start: 20091020
  3. LISINOPRIL [Concomitant]
  4. CENTYL K [Concomitant]
     Dosage: 2.5 MG, UNK
     Route: 048
  5. ACETYLSALICYLIC ACID [Concomitant]
  6. OMEPRAZOLE [Concomitant]

REACTIONS (2)
  - FACE OEDEMA [None]
  - IMPETIGO [None]
